FAERS Safety Report 4491994-7 (Version None)
Quarter: 2004Q4

REPORT INFORMATION
  Report Type: 
  Country: None (occurrence: None)
  Receive Date: 20041101
  Receipt Date: 20041020
  Transmission Date: 20050328
  Serious: Yes (Hospitalization)
  Sender: FDA-Public Use
  Company Number: 207010

PATIENT
  Age: 79 Year
  Sex: Male

DRUGS (12)
  1. AVASTIN [Suspect]
     Indication: COLORECTAL CANCER METASTATIC
     Dosage: 300 MG, Q2W, INTRAVENOUS
     Route: 042
     Dates: start: 20040326, end: 20040519
  2. FLUOROURACIL [Concomitant]
  3. LEUCOVORIN CALCIUM [Concomitant]
  4. IRINOTECAN HCL [Concomitant]
  5. MULTIVITAMIN (MULTIVITAMINS NOS) [Concomitant]
  6. VITAMIN C (ASCORBIC ACID) [Concomitant]
  7. VITAMIN B12 [Concomitant]
  8. LEVOXYL [Concomitant]
  9. THEOPHYLLINE [Concomitant]
  10. COMBIVENT               (ALBUTEROL, ALBUTEROL SULFATE, IPRATROPIUM BRO [Concomitant]
  11. ALBUTEROL INHALER              (ALBUTEROL SULFATE, ALBUTEROL) [Concomitant]
  12. INHALER (TYPE UNKNOWN) (GENERIC COMPONENTS (S) NOT KNOWN) [Concomitant]

REACTIONS (2)
  - MYOCARDIAL ISCHAEMIA [None]
  - PNEUMONIA [None]
